FAERS Safety Report 17704651 (Version 1)
Quarter: 2020Q2

REPORT INFORMATION
  Report Type: Spontaneous
  Country: US (occurrence: US)
  Receive Date: 20200423
  Receipt Date: 20200423
  Transmission Date: 20200714
  Serious: Yes (Hospitalization)
  Sender: FDA-Public Use
  Company Number: None

PATIENT
  Age: 69 Year
  Sex: Male

DRUGS (1)
  1. NOVOLOG [Suspect]
     Active Substance: INSULIN ASPART
     Indication: DIABETES MELLITUS
     Dosage: ?          OTHER STRENGTH:100U/ML 3ML;OTHER DOSE:34UNITS; IN THE AM?
     Route: 058
     Dates: start: 20121107, end: 20180607

REACTIONS (3)
  - Hypoglycaemia [None]
  - Sinus bradycardia [None]
  - Arthralgia [None]

NARRATIVE: CASE EVENT DATE: 20180607
